FAERS Safety Report 9830420 (Version 1)
Quarter: 2014Q1

REPORT INFORMATION
  Report Type: Spontaneous
  Country: US (occurrence: US)
  Receive Date: 20140120
  Receipt Date: 20140120
  Transmission Date: 20141002
  Serious: Yes (Hospitalization)
  Sender: FDA-Public Use
  Company Number: US-BAYER-2014-009606

PATIENT
  Age: 36 Year
  Sex: Female
  Weight: 82.9 kg

DRUGS (9)
  1. YAZ [Suspect]
  2. YASMIN [Suspect]
  3. ALBUTEROL INHALER [Concomitant]
  4. SYMBICORT [Concomitant]
  5. PREDNISONE [Concomitant]
  6. INVANZ [Concomitant]
  7. SOLU MEDROL [Concomitant]
  8. TIZANIDINE HYDROCHLORIDE [Concomitant]
  9. OXYCODONE/APAP [Concomitant]

REACTIONS (3)
  - Subclavian vein thrombosis [None]
  - Axillary vein thrombosis [None]
  - Thrombophlebitis superficial [None]
